FAERS Safety Report 5016097-4 (Version None)
Quarter: 2006Q2

REPORT INFORMATION
  Report Type: 
  Country: None (occurrence: None)
  Receive Date: 20060414
  Receipt Date: 20060306
  Transmission Date: 20061013
  Serious: No
  Sender: FDA-Public Use
  Company Number: 2006SP001086

PATIENT
  Age: 59 Year
  Sex: Male
  Weight: 122.4712 kg

DRUGS (6)
  1. LUNESTA [Suspect]
     Indication: INSOMNIA
     Dosage: 3 MG;HS;ORAL
     Route: 048
     Dates: start: 20060302
  2. TRAZODONE HCL [Suspect]
     Dosage: 100 MG;HS;ORAL
     Route: 048
     Dates: start: 20060304, end: 20060305
  3. EFFEXOR [Concomitant]
  4. ATENOLOL [Concomitant]
  5. PRILOSEC [Concomitant]
  6. ASPIRIN [Concomitant]

REACTIONS (3)
  - DRUG INEFFECTIVE [None]
  - INITIAL INSOMNIA [None]
  - RESTLESS LEGS SYNDROME [None]
